FAERS Safety Report 7368541-5 (Version None)
Quarter: 2011Q1

REPORT INFORMATION
  Report Type: 
  Country: None (occurrence: None)
  Receive Date: 20110323
  Receipt Date: 20110311
  Transmission Date: 20110831
  Serious: Yes (Death, Hospitalization)
  Sender: FDA-Public Use
  Company Number: US-JNJFOC-20100603114

PATIENT
  Sex: Female
  Weight: 92.53 kg

DRUGS (13)
  1. POTASSIUM CHLORIDE [Concomitant]
  2. STELARA [Suspect]
     Indication: PSORIASIS
     Route: 058
  3. LEXAPRO [Concomitant]
  4. ACYCLOVIR [Concomitant]
  5. HYDROCHLOROTHIAZIDE [Concomitant]
  6. PRAMIPEXOLE DIHYDROCHLORIDE [Concomitant]
  7. AZATHIOPRINE [Concomitant]
  8. OXYCODONE [Concomitant]
     Dosage: 7.5/325 MG 4 HRS PRN
  9. DOXYCYCLINE [Concomitant]
     Dosage: FOR 14 DAYS
  10. DEXAMETHASONE [Concomitant]
  11. HYDROXYCHLOROQUINE SULFATE [Concomitant]
  12. VITAMIN D [Concomitant]
  13. ZOLPIDEM [Concomitant]

REACTIONS (5)
  - CARDIO-RESPIRATORY ARREST [None]
  - UPPER GASTROINTESTINAL HAEMORRHAGE [None]
  - LEFT VENTRICULAR DYSFUNCTION [None]
  - SHOCK [None]
  - ASPIRATION [None]
